FAERS Safety Report 9837485 (Version 1)
Quarter: 2013Q4

REPORT INFORMATION
  Report Type: Spontaneous
  Country: US (occurrence: None)
  Receive Date: 20131205
  Receipt Date: 20131205
  Transmission Date: 20140711
  Serious: Yes (Disabling, Other)
  Sender: FDA-Public Use
  Company Number: 163-POMAL-13070201

PATIENT
  Age: 63 Year
  Sex: Male

DRUGS (3)
  1. POMALYST [Suspect]
     Indication: PLASMA CELL MYELOMA
     Dosage: 4 MG, 1 IN 1 D, PO
     Route: 048
     Dates: start: 20130307
  2. RED BLOOD CELLS (RED BLOOD CELLS) [Concomitant]
  3. NEUPOGEN (FILGRASTIM) [Concomitant]

REACTIONS (3)
  - Neutropenia [None]
  - Anaemia [None]
  - Plasma cell myeloma [None]
